FAERS Safety Report 6421712-4 (Version None)
Quarter: 2009Q4

REPORT INFORMATION
  Report Type: 
  Country: None (occurrence: None)
  Receive Date: 20091030
  Receipt Date: 20091020
  Transmission Date: 20100525
  Serious: Yes (Disabling)
  Sender: FDA-Public Use
  Company Number: BE-ABBOTT-08P-013-0481306-00

PATIENT
  Sex: Male

DRUGS (4)
  1. HUMIRA [Suspect]
     Indication: CROHN'S DISEASE
     Route: 058
     Dates: start: 20080506
  2. IMURAN [Concomitant]
     Indication: CROHN'S DISEASE
     Dates: start: 20021007, end: 20080801
  3. MINOCIN [Concomitant]
     Indication: ACNE
     Dates: start: 20080204
  4. ACETAMINOPHEN [Concomitant]
     Indication: HEADACHE
     Dates: start: 20080201

REACTIONS (2)
  - EPSTEIN-BARR VIRUS INFECTION [None]
  - PANCREATITIS [None]
